APPROVED DRUG PRODUCT: ANUSOL HC
Active Ingredient: HYDROCORTISONE
Strength: 2.5%
Dosage Form/Route: CREAM;TOPICAL
Application: A088250 | Product #001 | TE Code: AT
Applicant: SALIX PHARMACEUTICALS INC
Approved: Jun 6, 1984 | RLD: No | RS: No | Type: RX